FAERS Safety Report 19874992 (Version 2)
Quarter: 2021Q4

REPORT INFORMATION
  Report Type: Spontaneous
  Country: US (occurrence: US)
  Receive Date: 20210923
  Receipt Date: 20211004
  Transmission Date: 20220303
  Serious: Yes (Life-Threatening, Hospitalization)
  Sender: FDA-Public Use
  Company Number: US-TEVA-2021-US-1955635

PATIENT
  Age: 73 Year
  Sex: Female

DRUGS (1)
  1. HYDRALAZINE [Suspect]
     Active Substance: HYDRALAZINE HYDROCHLORIDE
     Indication: Cardiac failure
     Route: 065

REACTIONS (4)
  - Acute kidney injury [Recovering/Resolving]
  - Pleural effusion [Recovering/Resolving]
  - Respiratory failure [Recovering/Resolving]
  - Lupus-like syndrome [Recovering/Resolving]
